FAERS Safety Report 10982333 (Version 1)
Quarter: 2015Q2

REPORT INFORMATION
  Report Type: Spontaneous
  Country: US (occurrence: US)
  Receive Date: 20150403
  Receipt Date: 20150403
  Transmission Date: 20150821
  Serious: No
  Sender: FDA-Public Use
  Company Number: US-PFIZER INC-2015110167

PATIENT
  Age: 83 Year
  Sex: Female
  Weight: 64 kg

DRUGS (1)
  1. DETROL LA [Suspect]
     Active Substance: TOLTERODINE TARTRATE
     Indication: INCONTINENCE
     Dosage: 4 MG, DAILY
     Route: 048
     Dates: start: 2014

REACTIONS (3)
  - Drug ineffective [Recovering/Resolving]
  - Body height decreased [Unknown]
  - Drug effect incomplete [Not Recovered/Not Resolved]
